FAERS Safety Report 15274294 (Version 2)
Quarter: 2018Q3

REPORT INFORMATION
  Report Type: Spontaneous
  Country: US (occurrence: US)
  Receive Date: 20180814
  Receipt Date: 20180814
  Transmission Date: 20181010
  Serious: No
  Sender: FDA-Public Use
  Company Number: US-AUROBINDO-AUR-APU-2017-46388

PATIENT
  Weight: 62 kg

DRUGS (1)
  1. LEVOFLOXACIN TABLETS 500MG [Suspect]
     Active Substance: LEVOFLOXACIN
     Indication: SINUSITIS
     Dosage: 500 MG, ONE PILL A DAY FOR 7 DAYS
     Route: 065
     Dates: end: 20171210

REACTIONS (1)
  - Tendon pain [Not Recovered/Not Resolved]
